FAERS Safety Report 10026223 (Version 1)
Quarter: 2014Q1

REPORT INFORMATION
  Report Type: Spontaneous
  Country: US (occurrence: US)
  Receive Date: 20140320
  Receipt Date: 20140320
  Transmission Date: 20141002
  Serious: No
  Sender: FDA-Public Use
  Company Number: US-ALLERGAN-1314874US

PATIENT
  Sex: Male

DRUGS (3)
  1. LUMIGAN 0.01% [Suspect]
     Indication: POSTOPERATIVE CARE
     Dosage: 1 GTT, QHS
     Route: 047
     Dates: start: 201308
  2. BLINK                              /00582501/ [Concomitant]
     Indication: DRY EYE
  3. VITAMIN D                          /00107901/ [Concomitant]
     Indication: PRODUCT USED FOR UNKNOWN INDICATION

REACTIONS (8)
  - Foreign body sensation in eyes [Not Recovered/Not Resolved]
  - Lacrimation increased [Not Recovered/Not Resolved]
  - Lacrimal disorder [Not Recovered/Not Resolved]
  - Therapeutic response unexpected [Not Recovered/Not Resolved]
  - Therapeutic response unexpected [Not Recovered/Not Resolved]
  - Off label use [Unknown]
  - Skin hyperpigmentation [Not Recovered/Not Resolved]
  - Erythema of eyelid [Not Recovered/Not Resolved]
